FAERS Safety Report 19169169 (Version 2)
Quarter: 2022Q4

REPORT INFORMATION
  Report Type: Report from Study
  Country: US (occurrence: US)
  Receive Date: 20210422
  Receipt Date: 20221201
  Transmission Date: 20230113
  Serious: Yes (Hospitalization, Other)
  Sender: FDA-Public Use
  Company Number: US-SHIRE-US201918971

PATIENT
  Age: 38 Year
  Sex: Female

DRUGS (1)
  1. HUMAN IMMUNOGLOBULIN G\HYALURONIDASE RECOMBINANT HUMAN [Suspect]
     Active Substance: HUMAN IMMUNOGLOBULIN G\HYALURONIDASE RECOMBINANT HUMAN
     Indication: Primary immunodeficiency syndrome
     Dosage: 25 GRAM, 2/WEEK
     Route: 065

REACTIONS (5)
  - Pneumonia [Unknown]
  - Hypermetabolism [Unknown]
  - Therapy non-responder [Unknown]
  - Cough [Unknown]
  - Blood immunoglobulin A increased [Unknown]

NARRATIVE: CASE EVENT DATE: 20190610
